FAERS Safety Report 6256491-7 (Version None)
Quarter: 2009Q3

REPORT INFORMATION
  Report Type: 
  Country: None (occurrence: None)
  Receive Date: 20090706
  Receipt Date: 20090629
  Transmission Date: 20100115
  Serious: Yes (Hospitalization)
  Sender: FDA-Public Use
  Company Number: CA-BAYER-200832961NA

PATIENT
  Age: 61 Year
  Sex: Female

DRUGS (8)
  1. CIPRO [Suspect]
     Indication: DRUG USE FOR UNKNOWN INDICATION
     Dosage: TOTAL DAILY DOSE: 1000 MG  UNIT DOSE: 500 MG
     Route: 048
     Dates: start: 20080115, end: 20080123
  2. PAXIL [Suspect]
     Indication: PANIC DISORDER
     Dosage: TOTAL DAILY DOSE: 20 MG  UNIT DOSE: 20 MG
     Route: 048
     Dates: start: 19980101
  3. ATIVAN [Concomitant]
  4. GABAPENTIN [Concomitant]
  5. LANOXIN [Concomitant]
  6. LIPIDIL [Concomitant]
  7. LOZIDE [Concomitant]
  8. REMODULIN [Concomitant]

REACTIONS (2)
  - AMNESIA [None]
  - HYPONATRAEMIA [None]
